FAERS Safety Report 5533792-9 (Version None)
Quarter: 2007Q4

REPORT INFORMATION
  Report Type: 
  Country: None (occurrence: None)
  Receive Date: 20071204
  Receipt Date: 20071126
  Transmission Date: 20080405
  Serious: Yes (Hospitalization)
  Sender: FDA-Public Use
  Company Number: US-ELI_LILLY_AND_COMPANY-US200711005912

PATIENT
  Sex: Male

DRUGS (12)
  1. HUMULIN N [Suspect]
  2. ASPIRIN [Concomitant]
     Dosage: 81 MG, DAILY (1/D)
  3. ALBUTEROL [Concomitant]
     Dosage: UNK, 4/D
  4. LEVOTHYROXINE SODIUM [Concomitant]
     Dosage: 100 UG, DAILY (1/D)
  5. FLOMAX [Concomitant]
     Dosage: 0.4 MG, DAILY (1/D)
  6. LASIX [Concomitant]
     Dosage: 40 MG, DAILY (1/D)
  7. PREDNISONE TAB [Concomitant]
     Dosage: 20 MG, DAILY (1/D)
  8. PREDNISONE TAB [Concomitant]
     Dosage: 10 MG, DAILY (1/D)
  9. VISTARIL [Concomitant]
     Dosage: 25 MG, EACH EVENING
  10. ALTACE [Concomitant]
     Dosage: 5 MG, DAILY (1/D)
  11. SINGULAIR [Concomitant]
     Dosage: 10 MG, DAILY (1/D)
  12. PRILOSEC [Concomitant]
     Dosage: 20 MG, DAILY (1/D)

REACTIONS (2)
  - DYSPNOEA [None]
  - POOR QUALITY SLEEP [None]
